FAERS Safety Report 9318395 (Version 1)
Quarter: 2013Q2

REPORT INFORMATION
  Report Type: Spontaneous
  Country: US (occurrence: US)
  Receive Date: 20130530
  Receipt Date: 20130530
  Transmission Date: 20140414
  Serious: No
  Sender: FDA-Public Use
  Company Number: US-GLAXOSMITHKLINE-A1012656A

PATIENT
  Age: 57 Year
  Sex: Female

DRUGS (2)
  1. VENTOLIN [Suspect]
     Indication: DYSPNOEA
     Dosage: 2PUFF SINGLE DOSE
     Route: 055
     Dates: start: 20130215, end: 20130215
  2. SIMVASTATIN [Concomitant]

REACTIONS (1)
  - Headache [Recovered/Resolved]
